FAERS Safety Report 8445751-7 (Version None)
Quarter: 2012Q2

REPORT INFORMATION
  Report Type: 
  Country: None (occurrence: None)
  Receive Date: 20120618
  Receipt Date: 20120612
  Transmission Date: 20120825
  Serious: Yes (Hospitalization)
  Sender: FDA-Public Use
  Company Number: FR-GLAXOSMITHKLINE-B0807419A

PATIENT
  Age: 72 Year
  Sex: Male

DRUGS (2)
  1. ACETAMINOPHEN AND TRAMADOL HCL [Concomitant]
     Route: 048
  2. VALACYCLOVIR HYDROCHLORIDE [Suspect]
     Indication: HERPES ZOSTER
     Dosage: 500MG THREE TIMES PER DAY
     Route: 048
     Dates: start: 20120219, end: 20120221

REACTIONS (5)
  - RENAL FAILURE [None]
  - COMA [None]
  - SOMNOLENCE [None]
  - OVERDOSE [None]
  - METABOLIC ACIDOSIS [None]
